FAERS Safety Report 17483952 (Version 1)
Quarter: 2020Q1

REPORT INFORMATION
  Report Type: Spontaneous
  Country: US (occurrence: US)
  Receive Date: 20200218
  Receipt Date: 20200218
  Transmission Date: 20200409
  Serious: No
  Sender: FDA-Public Use
  Company Number: None

PATIENT
  Age: 79 Year
  Sex: Female
  Weight: 81.65 kg

DRUGS (23)
  1. SYMBICORT [Concomitant]
     Active Substance: BUDESONIDE\FORMOTEROL FUMARATE DIHYDRATE
  2. METOPROLOL. [Concomitant]
     Active Substance: METOPROLOL
  3. ALBUTEROL. [Concomitant]
     Active Substance: ALBUTEROL
  4. TYLENOL [Concomitant]
     Active Substance: ACETAMINOPHEN
  5. ASACOL [Concomitant]
     Active Substance: MESALAMINE
  6. ENTOCORT [Concomitant]
     Active Substance: BUDESONIDE
  7. VITAMIN B12 [Concomitant]
     Active Substance: CYANOCOBALAMIN
  8. BEANO [Concomitant]
     Active Substance: ASPERGILLUS NIGER .ALPHA.-GALACTOSIDASE
  9. LORAZEPAM. [Concomitant]
     Active Substance: LORAZEPAM
  10. METAMUCIL [Concomitant]
     Active Substance: PLANTAGO SEED
  11. FISH OIL [Concomitant]
     Active Substance: FISH OIL
  12. FOLIC ACID. [Concomitant]
     Active Substance: FOLIC ACID
  13. TUMS [Concomitant]
     Active Substance: CALCIUM CARBONATE
  14. ACIPHEX [Concomitant]
     Active Substance: RABEPRAZOLE SODIUM
  15. ALINIA [Suspect]
     Active Substance: NITAZOXANIDE
     Indication: DIVERTICULITIS
     Dosage: ?          QUANTITY:1 DF DOSAGE FORM;?
     Route: 048
     Dates: start: 20191214, end: 20191223
  16. MULTIVITAMIN [Concomitant]
     Active Substance: VITAMINS
  17. CITRACAL [Concomitant]
     Active Substance: CALCIUM CITRATE
  18. ALINIA [Suspect]
     Active Substance: NITAZOXANIDE
     Indication: ABDOMINAL PAIN LOWER
     Dates: end: 20200130
  19. SYNTHROID [Concomitant]
     Active Substance: LEVOTHYROXINE SODIUM
  20. MOISTURE EYE DROPS [Concomitant]
  21. BENTYL [Concomitant]
     Active Substance: DICYCLOMINE HYDROCHLORIDE
  22. ZOFRAN [Concomitant]
     Active Substance: ONDANSETRON HYDROCHLORIDE
  23. AMBIEN [Concomitant]
     Active Substance: ZOLPIDEM TARTRATE

REACTIONS (1)
  - Chromaturia [None]

NARRATIVE: CASE EVENT DATE: 20191214
